FAERS Safety Report 19814758 (Version 3)
Quarter: 2021Q4

REPORT INFORMATION
  Report Type: Report from Study
  Country: JP (occurrence: JP)
  Receive Date: 20210909
  Receipt Date: 20211012
  Transmission Date: 20220303
  Serious: Yes (Hospitalization, Other)
  Sender: FDA-Public Use
  Company Number: JP-BRISTOL-MYERS SQUIBB COMPANY-BMS-2021-090718

PATIENT
  Age: 73 Year
  Sex: Female
  Weight: 50.8 kg

DRUGS (16)
  1. NIVOLUMAB [Suspect]
     Active Substance: NIVOLUMAB
     Indication: Pancreatic carcinoma
     Dosage: UNK
     Route: 065
  2. GIMERACIL\OTERACIL\TEGAFUR [Suspect]
     Active Substance: GIMERACIL\OTERACIL\TEGAFUR
     Indication: Pancreatic carcinoma
     Dosage: 100 MG/DAY, ORAL ONLY ON THE DAY OF RADIATION IRRADIATION
     Route: 048
     Dates: start: 20210629, end: 20210803
  3. GIMERACIL\OTERACIL\TEGAFUR [Suspect]
     Active Substance: GIMERACIL\OTERACIL\TEGAFUR
     Dosage: 100 MG/DAY, ORAL ONLY ON THE DAY OF RADIATION IRRADIATION
     Route: 048
     Dates: start: 20210816, end: 20210820
  4. SPIRIVA [Concomitant]
     Active Substance: TIOTROPIUM BROMIDE MONOHYDRATE
     Indication: Chronic obstructive pulmonary disease
     Dosage: 2 DF, EVERYDAY
     Route: 055
  5. FEBUXOSTAT [Concomitant]
     Active Substance: FEBUXOSTAT
     Indication: Hyperlipidaemia
     Dosage: 10 MILLIGRAM, QD
     Route: 048
  6. TELMISARTAN [Concomitant]
     Active Substance: TELMISARTAN
     Indication: Hypertension
     Dosage: 20 MILLIGRAM, QD
     Route: 048
  7. VONOPRAZAN FUMARATE [Concomitant]
     Active Substance: VONOPRAZAN FUMARATE
     Indication: Gastric ulcer
     Dosage: 20 MILLIGRAM, QD
     Route: 048
  8. OPALMON [Concomitant]
     Active Substance: LIMAPROST
     Indication: Spinal stenosis
     Dosage: 10 MICROGRAM, Q12H
     Route: 048
  9. CALONAL [Concomitant]
     Active Substance: ACETAMINOPHEN
     Indication: Cancer pain
     Dosage: 200 MILLIGRAM, PRN
  10. INDOMETHACIN [Concomitant]
     Active Substance: INDOMETHACIN
     Indication: Arthralgia
     Dosage: OINTMENT, CREAM- PRN
     Route: 061
     Dates: start: 20210629
  11. DICLOFENAC SODIUM [Concomitant]
     Active Substance: DICLOFENAC SODIUM
     Indication: Arthralgia
     Dosage: OINTMENT, CREAM- PRN
     Route: 061
     Dates: start: 20210629
  12. LOXOPROFEN [Concomitant]
     Active Substance: LOXOPROFEN
     Indication: Cancer pain
     Dosage: 200 MILLIGRAM, PRN
     Route: 048
     Dates: start: 20210629
  13. OXYCODONE HYDROCHLORIDE [Concomitant]
     Active Substance: OXYCODONE HYDROCHLORIDE
     Indication: Cancer pain
     Dosage: 2.5 MILLIGRAM-PRN (POWDER (EXCEPT-DPO))
     Route: 048
     Dates: start: 20210705
  14. FENTANYL [Concomitant]
     Active Substance: FENTANYL
     Indication: Cancer pain
     Dosage: 1.5 MILLIGRAM-TAPE (INCLUDING POULTICE)
     Route: 062
     Dates: start: 20210720
  15. METOCLOPRAMIDE [Concomitant]
     Active Substance: METOCLOPRAMIDE
     Indication: Prophylaxis of nausea and vomiting
     Dosage: 5 MILLIGRAM, QD
     Route: 048
     Dates: start: 20210709
  16. ABSTRAL [Concomitant]
     Active Substance: FENTANYL CITRATE
     Indication: Cancer pain
     Dosage: 100 MICROGRAM, PRN
     Route: 048
     Dates: start: 20210720

REACTIONS (1)
  - Liver abscess [Recovered/Resolved]

NARRATIVE: CASE EVENT DATE: 20210902
